FAERS Safety Report 9055661 (Version 1)
Quarter: 2013Q1

REPORT INFORMATION
  Report Type: Spontaneous
  Country: ZA (occurrence: ZA)
  Receive Date: 20130206
  Receipt Date: 20130206
  Transmission Date: 20140127
  Serious: Yes (Other)
  Sender: FDA-Public Use
  Company Number: ZA-JNJFOC-20130113227

PATIENT
  Age: 68 None
  Sex: Female
  Weight: 42 kg

DRUGS (6)
  1. DUROGESIC [Suspect]
     Indication: PAIN
     Route: 062
  2. DUROGESIC [Suspect]
     Indication: PAIN
     Route: 062
  3. DUROGESIC [Suspect]
     Indication: PAIN
     Route: 062
     Dates: start: 20121230
  4. CELEBREX [Concomitant]
     Indication: BONE PAIN
     Route: 048
  5. CORTISONE [Concomitant]
     Indication: BONE PAIN
     Route: 065
  6. PANADO [Concomitant]
     Indication: BONE PAIN
     Route: 048

REACTIONS (11)
  - Confusional state [Recovering/Resolving]
  - Hallucination [Recovering/Resolving]
  - Hyperhidrosis [Recovered/Resolved]
  - Agitation [Recovering/Resolving]
  - Wrong technique in drug usage process [Unknown]
  - Wrong technique in drug usage process [Unknown]
  - Dyspnoea [Not Recovered/Not Resolved]
  - Abnormal behaviour [Recovering/Resolving]
  - Irritability [Recovering/Resolving]
  - Pain [Unknown]
  - Incorrect dose administered [Unknown]
